FAERS Safety Report 4284919-0 (Version None)
Quarter: 2004Q1

REPORT INFORMATION
  Report Type: 
  Country: None (occurrence: None)
  Receive Date: 20040121
  Receipt Date: 20030121
  Transmission Date: 20041129
  Serious: Yes (Other)
  Sender: FDA-Public Use
  Company Number: A03200300144

PATIENT
  Age: 75 Year
  Sex: Male
  Weight: 72.5755 kg

DRUGS (5)
  1. PLAVIX [Suspect]
     Indication: ARTERIOSCLEROSIS
     Dosage: 75 MG QD - ORAL
     Route: 048
     Dates: start: 20020907, end: 20030122
  2. AMLODIPINE BESYLATE [Concomitant]
  3. LEVOTHYROXINE SODIUM [Concomitant]
  4. ACETYLSALICYLIC ACID SRT [Concomitant]
  5. LORAZEPAM [Concomitant]

REACTIONS (4)
  - DIARRHOEA [None]
  - DYSPEPSIA [None]
  - HEADACHE [None]
  - HYPERTENSION [None]
